FAERS Safety Report 6609462-2 (Version None)
Quarter: 2010Q1

REPORT INFORMATION
  Report Type: 
  Country: None (occurrence: None)
  Receive Date: 20100302
  Receipt Date: 20100222
  Transmission Date: 20100710
  Serious: Yes (Death, Other)
  Sender: FDA-Public Use
  Company Number: US-NAPPMUNDI-USA-2010-0042366

PATIENT
  Age: 50 Year
  Sex: Female

DRUGS (3)
  1. OXYCONTIN [Suspect]
     Indication: DRUG USE FOR UNKNOWN INDICATION
  2. PERCOCET [Suspect]
     Indication: DRUG USE FOR UNKNOWN INDICATION
  3. ALCOHOL [Suspect]
     Indication: DRUG ABUSE

REACTIONS (4)
  - DEATH [None]
  - PAIN [None]
  - POLYSUBSTANCE DEPENDENCE [None]
  - SUBSTANCE ABUSE [None]
